FAERS Safety Report 10143003 (Version 1)
Quarter: 2014Q2

REPORT INFORMATION
  Report Type: Spontaneous
  Country: US (occurrence: None)
  Receive Date: 20140429
  Receipt Date: 20140429
  Transmission Date: 20141212
  Serious: Yes (Life-Threatening, Hospitalization)
  Sender: FDA-Public Use
  Company Number: None

PATIENT
  Age: 42 Year
  Sex: Female
  Weight: 59.88 kg

DRUGS (1)
  1. BACTRIM DS [Suspect]
     Indication: SKIN INFECTION
     Route: 048
     Dates: start: 20130909, end: 20130916

REACTIONS (7)
  - Pyrexia [None]
  - Rash [None]
  - Viral infection [None]
  - Nausea [None]
  - Vomiting [None]
  - Convulsion [None]
  - Coma [None]
